FAERS Safety Report 6623933-4 (Version None)
Quarter: 2010Q1

REPORT INFORMATION
  Report Type: 
  Country: None (occurrence: None)
  Receive Date: 20100310
  Receipt Date: 20100301
  Transmission Date: 20100710
  Serious: Yes (Hospitalization)
  Sender: FDA-Public Use
  Company Number: IT-ASTRAZENECA-2010SE08706

PATIENT
  Age: 31726 Day
  Sex: Female

DRUGS (7)
  1. SEROQUEL [Suspect]
     Indication: AGITATION
     Route: 048
     Dates: start: 20090901, end: 20100220
  2. BROMAZEPAM [Concomitant]
     Indication: INSOMNIA
     Route: 048
     Dates: start: 20090901
  3. DILTIAZEM [Concomitant]
     Indication: CARDIOVASCULAR DISORDER
     Route: 048
     Dates: start: 20090901
  4. LASIX [Concomitant]
     Indication: CARDIOVASCULAR DISORDER
     Route: 048
     Dates: start: 20090901
  5. MONOKET [Concomitant]
     Indication: CARDIOVASCULAR DISORDER
     Route: 048
     Dates: start: 20090901
  6. RIXIL [Concomitant]
     Indication: CARDIOVASCULAR DISORDER
     Route: 048
     Dates: start: 20090901
  7. ASCRIPTIN [Concomitant]
     Indication: PLATELET AGGREGATION INHIBITION
     Route: 048
     Dates: start: 20090901

REACTIONS (3)
  - APHASIA [None]
  - CEREBRAL ISCHAEMIA [None]
  - MUSCULAR WEAKNESS [None]
